FAERS Safety Report 18902329 (Version 1)
Quarter: 2021Q1

REPORT INFORMATION
  Report Type: Other
  Country: CA (occurrence: CA)
  Receive Date: 20210217
  Receipt Date: 20210217
  Transmission Date: 20210420
  Serious: Yes (Hospitalization, Other)
  Sender: FDA-Public Use
  Company Number: CA-APOTEX-2021AP002745

PATIENT
  Age: 64 Year
  Sex: Male

DRUGS (9)
  1. PANTOPRAZOLE [Suspect]
     Active Substance: PANTOPRAZOLE
     Indication: GASTROOESOPHAGEAL REFLUX DISEASE
     Dosage: 40 MILLIGRAM, QD
     Route: 065
  2. SPIRIVA RESPIMAT [Suspect]
     Active Substance: TIOTROPIUM BROMIDE
     Indication: ASTHMA
     Dosage: 2 DOSAGE FORM, QD (ORAL INHALATION WITH RESPIMAT INHALER ONLY 5G/DOSE)
     Route: 065
  3. SYMBICORT [Suspect]
     Active Substance: BUDESONIDE\FORMOTEROL FUMARATE DIHYDRATE
     Dosage: 2 DOSAGE FORM, QID
     Route: 065
  4. ALVESCO [Suspect]
     Active Substance: CICLESONIDE
     Indication: ASTHMA
     Dosage: 2 DOSAGE FORM, QD
     Route: 065
  5. PREDNISONE. [Suspect]
     Active Substance: PREDNISONE
     Indication: ASTHMA
     Dosage: 50 MILLIGRAM, QD
     Route: 065
  6. SYMBICORT [Suspect]
     Active Substance: BUDESONIDE\FORMOTEROL FUMARATE DIHYDRATE
     Dosage: 2 DOSAGE FORM, TID
     Route: 065
  7. NUCALA [Suspect]
     Active Substance: MEPOLIZUMAB
     Indication: ASTHMA
     Dosage: 100 MILLIGRAM
     Route: 042
  8. SYMBICORT [Suspect]
     Active Substance: BUDESONIDE\FORMOTEROL FUMARATE DIHYDRATE
     Indication: ASTHMA
     Dosage: 2 DOSAGE FORM, BID
     Route: 065
  9. SALBUTAMOL [Suspect]
     Active Substance: ALBUTEROL
     Indication: ASTHMA
     Dosage: 100 MICROGRAM
     Route: 065

REACTIONS (25)
  - Lymphadenopathy [Recovered/Resolved]
  - Oxygen saturation decreased [Recovered/Resolved]
  - Wheezing [Recovered/Resolved]
  - Blood count abnormal [Recovered/Resolved]
  - Bronchial secretion retention [Recovered/Resolved]
  - Bronchiectasis [Recovered/Resolved]
  - Dyspnoea exertional [Recovered/Resolved]
  - Lung opacity [Recovered/Resolved]
  - Snoring [Recovered/Resolved]
  - Fatigue [Recovered/Resolved]
  - Bronchiolitis [Recovered/Resolved]
  - Lung consolidation [Recovered/Resolved]
  - Therapeutic product effect incomplete [Recovered/Resolved]
  - Obstruction [Recovered/Resolved]
  - Sleep apnoea syndrome [Recovered/Resolved]
  - Chest discomfort [Recovered/Resolved]
  - Asthma [Recovered/Resolved]
  - Productive cough [Recovered/Resolved]
  - Nasal congestion [Recovered/Resolved]
  - Eosinophil count increased [Recovered/Resolved]
  - Condition aggravated [Recovered/Resolved]
  - Hypoxia [Recovered/Resolved]
  - Renal cyst [Recovered/Resolved]
  - Sputum discoloured [Recovered/Resolved]
  - Vascular shunt [Recovered/Resolved]
